FAERS Safety Report 6721416-4 (Version None)
Quarter: 2010Q2

REPORT INFORMATION
  Report Type: 
  Country: None (occurrence: None)
  Receive Date: 20100512
  Receipt Date: 20100506
  Transmission Date: 20101027
  Serious: Yes (Disabling, Other)
  Sender: FDA-Public Use
  Company Number: JP-NOVOPROD-307554

PATIENT
  Age: 14 Year
  Sex: Male
  Weight: 49 kg

DRUGS (6)
  1. NORDITROPIN NORDIFLEX [Suspect]
     Indication: GROWTH HORMONE DEFICIENCY
     Dosage: 0.6 MG, QD
     Route: 058
     Dates: start: 20080121, end: 20080521
  2. NORDITROPIN NORDIFLEX [Suspect]
     Dosage: 1 MG, QD
     Route: 058
     Dates: start: 20080522, end: 20100315
  3. CORTRIL                            /00028601/ [Concomitant]
     Dosage: 12 MG, QD
     Route: 048
     Dates: start: 19991201
  4. THYRADIN S [Concomitant]
     Dosage: UNK
     Route: 048
  5. DESMOPRESIN [Concomitant]
     Dosage: 2.5 UG, UNK
     Route: 045
  6. ENARMON                            /00069201/ [Concomitant]
     Dosage: 62.5 MG, QD
     Route: 030
     Dates: start: 20100218, end: 20100315

REACTIONS (2)
  - CONDITION AGGRAVATED [None]
  - CRANIOPHARYNGIOMA [None]
